FAERS Safety Report 6748702-6 (Version None)
Quarter: 2010Q2

REPORT INFORMATION
  Report Type: 
  Country: None (occurrence: None)
  Receive Date: 20100601
  Receipt Date: 20100517
  Transmission Date: 20101027
  Serious: Yes (Hospitalization, Disabling, Other)
  Sender: FDA-Public Use
  Company Number: PHEH2008US08641

PATIENT
  Sex: Male

DRUGS (53)
  1. AREDIA [Suspect]
     Dosage: 90 G, UNK
     Dates: start: 20031020, end: 20060908
  2. FOSAMAX [Suspect]
  3. ACTONEL [Suspect]
  4. ZOFRAN [Concomitant]
  5. INSULIN HUMAN [Concomitant]
  6. VALIUM [Concomitant]
  7. NITROGLIN [Concomitant]
     Route: 042
  8. VANCOMYCIN [Concomitant]
  9. NEXIUM [Concomitant]
  10. LOPRESSOR [Concomitant]
  11. MILK OF MAGNESIA TAB [Concomitant]
  12. COLACE [Concomitant]
  13. ZOCOR [Concomitant]
  14. MORPHINE [Concomitant]
     Route: 042
  15. ACETAMINOPHEN [Concomitant]
  16. OXYCODONE [Concomitant]
  17. XANAX [Concomitant]
  18. SIMVASTATIN [Concomitant]
  19. DOBUTAMINE HCL [Concomitant]
  20. COUMADIN [Concomitant]
  21. ECOTRIN [Concomitant]
  22. ALPRAZOLAM [Concomitant]
  23. ESOMEPRAZOLE MAGNESIUM [Concomitant]
  24. AVANDIA [Concomitant]
  25. OMEPRAZOLE [Concomitant]
  26. ULTRACET [Concomitant]
  27. LASIX [Concomitant]
  28. PRAVACHOL [Concomitant]
  29. INDOCIN [Concomitant]
  30. DARVOCET-N 100 [Concomitant]
  31. NAPROSYN [Concomitant]
  32. PRANDIN ^KUHN^ [Concomitant]
  33. PERCOCET [Concomitant]
  34. VICODIN [Concomitant]
  35. PROTONIX [Concomitant]
  36. STEROIDS NOS [Concomitant]
     Route: 008
  37. PRILOSEC [Concomitant]
  38. SORBITOL [Concomitant]
  39. DEPO-MEDROL [Concomitant]
  40. LIDOCAINE [Concomitant]
  41. ISOVUE-128 [Concomitant]
  42. TRIAMTERENE AND HYDROCHLOROTHIAZID ^HARRIS^ [Concomitant]
  43. TOPROL-XL [Concomitant]
  44. FRAGMIN [Concomitant]
  45. ANTIBIOTICS [Concomitant]
  46. OXYCODONE HCL AND ACETAMINOPHEN [Concomitant]
  47. ARICEPT [Concomitant]
  48. CEFTRIAXONE [Concomitant]
  49. LISINOPRIL [Concomitant]
  50. MUCOMYST [Concomitant]
  51. PLAVIX [Concomitant]
  52. INTEGRILIN [Concomitant]
     Dosage: UNK
     Dates: start: 20061001
  53. DYAZIDE [Concomitant]

REACTIONS (58)
  - ABDOMINAL PAIN LOWER [None]
  - ACUTE MYOCARDIAL INFARCTION [None]
  - ANHEDONIA [None]
  - ANXIETY [None]
  - ARTHRITIS [None]
  - ARTHROPATHY [None]
  - BURSITIS [None]
  - CALCULUS URETHRAL [None]
  - CEREBRAL ATROPHY [None]
  - CEREBRAL ISCHAEMIA [None]
  - CHRONIC OBSTRUCTIVE PULMONARY DISEASE [None]
  - CORONARY ARTERY BYPASS [None]
  - DEHYDRATION [None]
  - DENTAL IMPRESSION PROCEDURE [None]
  - DENTURE WEARER [None]
  - DIABETES MELLITUS INADEQUATE CONTROL [None]
  - DIABETIC NEPHROPATHY [None]
  - DIVERTICULUM INTESTINAL [None]
  - DIZZINESS [None]
  - DYSPNOEA [None]
  - EMPHYSEMA [None]
  - EXOSTOSIS [None]
  - GASTRIC ULCER [None]
  - GASTROOESOPHAGEAL REFLUX DISEASE [None]
  - HAEMATURIA [None]
  - HYDROCEPHALUS [None]
  - HYDRONEPHROSIS [None]
  - HYPERCHOLESTEROLAEMIA [None]
  - HYPERGLYCAEMIA [None]
  - HYPOTENSION [None]
  - INJURY [None]
  - INTERVERTEBRAL DISC DEGENERATION [None]
  - INTERVERTEBRAL DISC PROTRUSION [None]
  - LABYRINTHITIS [None]
  - LUMBAR RADICULOPATHY [None]
  - LUMBAR SPINAL STENOSIS [None]
  - MEMORY IMPAIRMENT [None]
  - MUSCULOSKELETAL PAIN [None]
  - NAUSEA [None]
  - NEPHROLITHIASIS [None]
  - OSTEONECROSIS OF JAW [None]
  - PAIN [None]
  - PARAESTHESIA [None]
  - PEPTIC ULCER [None]
  - PROSTATOMEGALY [None]
  - PYELOCALIECTASIS [None]
  - RENAL DISORDER [None]
  - RENAL FAILURE ACUTE [None]
  - ROTATOR CUFF SYNDROME [None]
  - SCOLIOSIS [None]
  - SPINAL OSTEOARTHRITIS [None]
  - SPONDYLOLISTHESIS [None]
  - TOOTH FRACTURE [None]
  - UPPER RESPIRATORY TRACT INFECTION [None]
  - VERTIGO [None]
  - VESTIBULAR DISORDER [None]
  - VOMITING [None]
  - WALKING AID USER [None]
